FAERS Safety Report 22638779 (Version 1)
Quarter: 2023Q2

REPORT INFORMATION
  Report Type: Spontaneous
  Country: US (occurrence: US)
  Receive Date: 20230626
  Receipt Date: 20230626
  Transmission Date: 20230721
  Serious: Yes (Other)
  Sender: FDA-Public Use
  Company Number: US-NOVOPROD-1070211

PATIENT
  Age: 82 Year
  Sex: Male

DRUGS (2)
  1. OZEMPIC [Suspect]
     Active Substance: SEMAGLUTIDE
     Indication: Obesity
  2. OZEMPIC [Suspect]
     Active Substance: SEMAGLUTIDE
     Indication: Diabetes mellitus
     Dosage: 0.25MG
     Route: 058
     Dates: start: 20230504, end: 20230524

REACTIONS (6)
  - Glomerular filtration rate decreased [Unknown]
  - Blood glucose increased [Unknown]
  - Renal pain [Recovered/Resolved]
  - Nocturia [Recovered/Resolved]
  - Blood potassium increased [Unknown]
  - Blood urea increased [Unknown]

NARRATIVE: CASE EVENT DATE: 20230501
